FAERS Safety Report 21912684 (Version 1)
Quarter: 2023Q1

REPORT INFORMATION
  Report Type: Spontaneous
  Country: US (occurrence: US)
  Receive Date: 20230125
  Receipt Date: 20230125
  Transmission Date: 20230417
  Serious: No
  Sender: FDA-Public Use
  Company Number: US-ALLERGAN-2236377US

PATIENT
  Age: 31 Year
  Sex: Male

DRUGS (1)
  1. BOTOX COSMETIC [Suspect]
     Active Substance: ONABOTULINUMTOXINA
     Indication: Product used for unknown indication
     Dosage: 60 UNITS, SINGLE

REACTIONS (5)
  - Nausea [Unknown]
  - Fatigue [Unknown]
  - Headache [Unknown]
  - Gastrointestinal disorder [Unknown]
  - Pyrexia [Unknown]
